FAERS Safety Report 21661249 (Version 1)
Quarter: 2022Q4

REPORT INFORMATION
  Report Type: Spontaneous
  Country: US (occurrence: US)
  Receive Date: 20221130
  Receipt Date: 20221130
  Transmission Date: 20230113
  Serious: Yes (Other)
  Sender: FDA-Public Use
  Company Number: US-SUN PHARMACEUTICAL INDUSTRIES LTD-2022R1-366557

PATIENT
  Age: 3 Month
  Sex: Male

DRUGS (5)
  1. ACETAZOLAMIDE [Suspect]
     Active Substance: ACETAZOLAMIDE
     Indication: Ocular hypertension
     Dosage: 250 MILLIGRAM, DAILY
     Route: 065
  2. LATANOPROST [Suspect]
     Active Substance: LATANOPROST
     Indication: Ocular hypertension
     Dosage: UNK ONCE DAILY
     Route: 047
  3. DORZOLAMIDE [Suspect]
     Active Substance: DORZOLAMIDE
     Indication: Ocular hypertension
     Dosage: UNKTHREE TIMES DAILY
     Route: 047
  4. NETARSUDIL [Suspect]
     Active Substance: NETARSUDIL
     Indication: Ocular hypertension
     Dosage: UNK 0.02% ONE DROP DAILY
     Route: 047
  5. TIMOLOL [Suspect]
     Active Substance: TIMOLOL
     Indication: Ocular hypertension
     Dosage: UNK TWICE DAILY
     Route: 065

REACTIONS (1)
  - Corneal oedema [Recovering/Resolving]
